FAERS Safety Report 16923795 (Version 1)
Quarter: 2019Q4

REPORT INFORMATION
  Report Type: Spontaneous
  Country: US (occurrence: US)
  Receive Date: 20191016
  Receipt Date: 20191016
  Transmission Date: 20200122
  Serious: Yes (Hospitalization)
  Sender: FDA-Public Use
  Company Number: NVSC2019US003179

PATIENT
  Age: 73 Year

DRUGS (1)
  1. PIQRAY [Suspect]
     Active Substance: ALPELISIB
     Indication: METASTATIC NEOPLASM
     Dosage: 300 MG, QD
     Route: 048

REACTIONS (1)
  - Diarrhoea [Recovered/Resolved]
